FAERS Safety Report 7222540-2 (Version None)
Quarter: 2011Q1

REPORT INFORMATION
  Report Type: 
  Country: None (occurrence: None)
  Receive Date: 20110112
  Receipt Date: 20110107
  Transmission Date: 20110831
  Serious: Yes (Other)
  Sender: FDA-Public Use
  Company Number: US-PFIZER INC-2010123254

PATIENT
  Sex: Female

DRUGS (1)
  1. NICOTROL [Suspect]
     Indication: SMOKING CESSATION THERAPY
     Dosage: UNK

REACTIONS (10)
  - HEART RATE IRREGULAR [None]
  - APHONIA [None]
  - CHOKING [None]
  - TOBACCO USER [None]
  - DRUG INEFFECTIVE [None]
  - PALPITATIONS [None]
  - EMPHYSEMA [None]
  - PRODUCT TASTE ABNORMAL [None]
  - HEART RATE INCREASED [None]
  - PRODUCT QUALITY ISSUE [None]
